FAERS Safety Report 7126531-1 (Version None)
Quarter: 2010Q4

REPORT INFORMATION
  Report Type: 
  Country: None (occurrence: None)
  Receive Date: 20101129
  Receipt Date: 20101117
  Transmission Date: 20110411
  Serious: Yes (Other)
  Sender: FDA-Public Use
  Company Number: JP-PFIZER INC-2010132027

PATIENT
  Age: 52 Year
  Sex: Male

DRUGS (3)
  1. LYRICA [Suspect]
     Dosage: 150 MG/DAY
     Route: 048
     Dates: start: 20100628, end: 20100730
  2. LYRICA [Suspect]
     Dosage: 300 MG/ DAY
     Route: 048
     Dates: start: 20100731, end: 20100903
  3. LYRICA [Suspect]
     Dosage: 600 MG/DAY
     Route: 048
     Dates: start: 20100904, end: 20101015

REACTIONS (3)
  - DRUG ADMINISTRATION ERROR [None]
  - OCULAR HYPERAEMIA [None]
  - RETINAL HAEMORRHAGE [None]
